FAERS Safety Report 23779815 (Version 1)
Quarter: 2024Q2

REPORT INFORMATION
  Report Type: Spontaneous
  Country: US (occurrence: None)
  Receive Date: 20240424
  Receipt Date: 20240424
  Transmission Date: 20240716
  Serious: Yes (Death)
  Sender: FDA-Public Use
  Company Number: None

PATIENT
  Age: 80 Year
  Sex: Female
  Weight: 60.78 kg

DRUGS (10)
  1. MEMANTINE [Suspect]
     Active Substance: MEMANTINE
     Indication: Hepatocellular carcinoma
     Dosage: FREQUENCY : TWICE A DAY;?
     Route: 048
     Dates: start: 20231204
  2. dronablnol [Concomitant]
  3. APIXABAN [Concomitant]
     Active Substance: APIXABAN
  4. camphor-methol [Concomitant]
  5. MIDODRINE [Concomitant]
  6. MIRTAZAPINE [Concomitant]
  7. RIFAXIMIN [Concomitant]
  8. LACTULOSE [Concomitant]
  9. PANTOPRAZOLE [Concomitant]
  10. MUPIROCIN [Concomitant]

REACTIONS (3)
  - Cardiac arrest [None]
  - Syncope [None]
  - Vomiting [None]

NARRATIVE: CASE EVENT DATE: 20240124
